FAERS Safety Report 7985754-X (Version None)
Quarter: 2011Q4

REPORT INFORMATION
  Report Type: 
  Country: None (occurrence: None)
  Receive Date: 20111216
  Receipt Date: 20111209
  Transmission Date: 20120403
  Serious: Yes (Death, Other)
  Sender: FDA-Public Use
  Company Number: US-SANOFI-AVENTIS-2011SA082354

PATIENT

DRUGS (2)
  1. DOCETAXEL [Suspect]
     Indication: NON-SMALL CELL LUNG CANCER
     Dosage: 70-75 MG/M2
     Route: 042
  2. ERLOTINIB HYDROCHLORIDE [Suspect]
     Indication: NON-SMALL CELL LUNG CANCER
     Route: 048

REACTIONS (19)
  - PULMONARY EMBOLISM [None]
  - ANAEMIA [None]
  - NEUTROPENIC SEPSIS [None]
  - NEUTROPENIA [None]
  - FEBRILE NEUTROPENIA [None]
  - NAUSEA [None]
  - DIARRHOEA [None]
  - DEHYDRATION [None]
  - INFECTION [None]
  - FATIGUE [None]
  - MYALGIA [None]
  - MUCOSAL INFLAMMATION [None]
  - THROMBOCYTOPENIA [None]
  - PAIN [None]
  - STOMATITIS [None]
  - HYPOKALAEMIA [None]
  - HYPONATRAEMIA [None]
  - RASH [None]
  - EYE DISORDER [None]
